FAERS Safety Report 7413707-9 (Version None)
Quarter: 2011Q2

REPORT INFORMATION
  Report Type: 
  Country: None (occurrence: None)
  Receive Date: 20110413
  Receipt Date: 20110405
  Transmission Date: 20111010
  Serious: Yes (Other)
  Sender: FDA-Public Use
  Company Number: PHHY2011FR28540

PATIENT

DRUGS (1)
  1. EVEROLIMUS [Suspect]
     Indication: METASTATIC RENAL CELL CARCINOMA

REACTIONS (6)
  - BLOOD TRIGLYCERIDES INCREASED [None]
  - THROMBOCYTOPENIA [None]
  - BLOOD CHOLESTEROL INCREASED [None]
  - APHTHOUS STOMATITIS [None]
  - SKIN LESION [None]
  - HEADACHE [None]
